FAERS Safety Report 24028226 (Version 2)
Quarter: 2024Q3

REPORT INFORMATION
  Report Type: Spontaneous
  Country: DE (occurrence: None)
  Receive Date: 20240628
  Receipt Date: 20240723
  Transmission Date: 20241017
  Serious: Yes (Other)
  Sender: ASTRAZENECA
  Company Number: 2024A146924

PATIENT
  Age: 77 Year
  Sex: Female

DRUGS (1)
  1. TEZSPIRE [Suspect]
     Active Substance: TEZEPELUMAB-EKKO
     Dates: start: 20230814

REACTIONS (6)
  - Pseudomonas infection [Unknown]
  - Asthma [Unknown]
  - Secretion discharge [Unknown]
  - Infection susceptibility increased [Unknown]
  - Dyspnoea [Unknown]
  - Drug ineffective [Unknown]
